FAERS Safety Report 21558824 (Version 1)
Quarter: 2022Q4

REPORT INFORMATION
  Report Type: Spontaneous
  Country: US (occurrence: US)
  Receive Date: 20221107
  Receipt Date: 20221107
  Transmission Date: 20230113
  Serious: No
  Sender: FDA-Public Use
  Company Number: US-AMGEN-USASP2022190481

PATIENT
  Age: 23 Year
  Sex: Male

DRUGS (2)
  1. NEUPOGEN [Suspect]
     Active Substance: FILGRASTIM
     Indication: Off label use
     Dosage: 125 MICROGRAM, QD
     Route: 065
  2. NEUPOGEN [Suspect]
     Active Substance: FILGRASTIM
     Indication: Barth syndrome

REACTIONS (2)
  - Therapeutic product effective for unapproved indication [Unknown]
  - Off label use [Unknown]
